FAERS Safety Report 16402478 (Version 2)
Quarter: 2019Q3

REPORT INFORMATION
  Report Type: Report from Study
  Country: US (occurrence: US)
  Receive Date: 20190607
  Receipt Date: 20190911
  Transmission Date: 20191004
  Serious: Yes (Other)
  Sender: FDA-Public Use
  Company Number: PHEH2019US023877

PATIENT
  Age: 53 Year
  Sex: Female
  Weight: 92.52 kg

DRUGS (1)
  1. COSENTYX [Suspect]
     Active Substance: SECUKINUMAB
     Indication: PSORIASIS
     Dosage: 300 MG, QMO (Q4W)
     Route: 065
     Dates: start: 20181202, end: 20190628

REACTIONS (2)
  - Cellulitis [Unknown]
  - Injection related reaction [Unknown]

NARRATIVE: CASE EVENT DATE: 201905
